FAERS Safety Report 21350341 (Version 1)
Quarter: 2022Q3

REPORT INFORMATION
  Report Type: Spontaneous
  Country: US (occurrence: None)
  Receive Date: 20220918
  Receipt Date: 20220918
  Transmission Date: 20221026
  Serious: Yes (Other)
  Sender: FDA-Public Use
  Company Number: None

PATIENT
  Sex: 0

DRUGS (2)
  1. FAMOTIDINE [Suspect]
     Active Substance: FAMOTIDINE
     Indication: Gastrooesophageal reflux disease
     Dosage: OTHER QUANTITY : 60 TABLET(S)?FREQUENCY : TWICE A DAY?
     Route: 048
  2. ZAFIRLUKAST [Suspect]
     Active Substance: ZAFIRLUKAST

REACTIONS (3)
  - Product appearance confusion [None]
  - Product design confusion [None]
  - Product label confusion [None]

NARRATIVE: CASE EVENT DATE: 20220825
